FAERS Safety Report 4503541-1 (Version None)
Quarter: 2004Q4

REPORT INFORMATION
  Report Type: 
  Country: None (occurrence: None)
  Receive Date: 20041117
  Receipt Date: 20040324
  Transmission Date: 20050328
  Serious: Yes (Hospitalization)
  Sender: FDA-Public Use
  Company Number: PHBS2004JP04062

PATIENT
  Age: 58 Year
  Sex: Male

DRUGS (8)
  1. TEGRETOL [Suspect]
     Indication: MUSCLE CRAMP
     Dosage: 30 MG/DAY
     Route: 048
     Dates: start: 20031218, end: 20040116
  2. ALLOPURINOL TAB [Concomitant]
     Dosage: 100 MG/DAY
     Route: 048
     Dates: start: 20001201, end: 20040116
  3. BEZATOL - SLOW RELEASE [Concomitant]
     Dosage: 200 MG/DAY
     Route: 048
     Dates: start: 20000401, end: 20040116
  4. JUSO-JO [Concomitant]
     Indication: CONSTIPATION
     Dosage: 1.5 G/DAY
     Route: 048
     Dates: start: 20010301
  5. LOXONIN [Concomitant]
     Dosage: 180 MG/DAY
     Route: 048
     Dates: start: 20031218
  6. SELBEX [Concomitant]
     Dosage: 150 MG/DAY
     Route: 048
     Dates: start: 20020301
  7. PREDONINE [Concomitant]
     Indication: BRAIN OEDEMA
     Dosage: 2.5 MG/DAY
     Route: 048
     Dates: start: 20031104, end: 20040119
  8. WARFARIN [Concomitant]
     Indication: DEEP VEIN THROMBOSIS
     Route: 048
     Dates: start: 20031225

REACTIONS (23)
  - ALANINE AMINOTRANSFERASE INCREASED [None]
  - ASPARTATE AMINOTRANSFERASE INCREASED [None]
  - BLOOD ALKALINE PHOSPHATASE INCREASED [None]
  - BLOOD LACTATE DEHYDROGENASE INCREASED [None]
  - DEEP VEIN THROMBOSIS [None]
  - DRUG HYPERSENSITIVITY [None]
  - ERYTHEMA [None]
  - FACE OEDEMA [None]
  - GAMMA-GLUTAMYLTRANSFERASE INCREASED [None]
  - GENERALISED ERYTHEMA [None]
  - HAEMATOCRIT DECREASED [None]
  - HAEMOGLOBIN DECREASED [None]
  - HEPATIC ENZYME INCREASED [None]
  - HEPATIC FUNCTION ABNORMAL [None]
  - LYMPHOCYTE MORPHOLOGY ABNORMAL [None]
  - LYMPHOCYTE STIMULATION TEST POSITIVE [None]
  - MALAISE [None]
  - PETECHIAE [None]
  - PLATELET COUNT DECREASED [None]
  - PYREXIA [None]
  - RED BLOOD CELL COUNT DECREASED [None]
  - SKIN TEST POSITIVE [None]
  - WHITE BLOOD CELL COUNT DECREASED [None]
